FAERS Safety Report 6126370-4 (Version None)
Quarter: 2009Q1

REPORT INFORMATION
  Report Type: 
  Country: None (occurrence: None)
  Receive Date: 20090320
  Receipt Date: 20090310
  Transmission Date: 20090719
  Serious: Yes (Other)
  Sender: FDA-Public Use
  Company Number: US-JNJFOC-20090302502

PATIENT
  Sex: Female

DRUGS (2)
  1. REMICADE [Suspect]
     Indication: DRUG USE FOR UNKNOWN INDICATION
     Route: 042
  2. HUMIRA [Suspect]
     Indication: RHEUMATOID ARTHRITIS
     Route: 050

REACTIONS (6)
  - ECZEMA [None]
  - HYPERHIDROSIS [None]
  - HYPOAESTHESIA [None]
  - NERVE INJURY [None]
  - RESPIRATORY TRACT INFECTION [None]
  - SINUSITIS [None]
